FAERS Safety Report 25006256 (Version 1)
Quarter: 2025Q1

REPORT INFORMATION
  Report Type: Spontaneous
  Country: US (occurrence: US)
  Receive Date: 20250224
  Receipt Date: 20250224
  Transmission Date: 20250408
  Serious: Yes (Death, Hospitalization, Other)
  Sender: AMGEN
  Company Number: US-AMGEN-USASP2025033400

PATIENT

DRUGS (1)
  1. INFLIXIMAB [Suspect]
     Active Substance: INFLIXIMAB
     Indication: Immune-mediated enterocolitis
     Route: 065

REACTIONS (5)
  - Death [Fatal]
  - Unevaluable event [Unknown]
  - Immune-mediated enterocolitis [Unknown]
  - Toxicity to various agents [Unknown]
  - Off label use [Unknown]
